FAERS Safety Report 6775862-3 (Version None)
Quarter: 2010Q2

REPORT INFORMATION
  Report Type: 
  Country: None (occurrence: None)
  Receive Date: 20100617
  Receipt Date: 20100611
  Transmission Date: 20101027
  Serious: Yes (Death, Life-Threatening, Hospitalization, Other)
  Sender: FDA-Public Use
  Company Number: FR-ELI_LILLY_AND_COMPANY-FR201006003002

PATIENT
  Sex: Male

DRUGS (21)
  1. ALIMTA [Suspect]
     Indication: LUNG ADENOCARCINOMA
     Dosage: 842 MG, UNK
     Route: 042
     Dates: start: 20100216
  2. LASIX [Concomitant]
     Dosage: 40 MG, DAILY (1/D)
     Route: 048
     Dates: start: 20100101
  3. EXFORGE                            /01634301/ [Concomitant]
     Route: 048
     Dates: start: 20100101
  4. DIAMICRON [Concomitant]
     Dosage: 60 MG, DAILY (1/D)
     Route: 048
     Dates: start: 20100101
  5. TERBUTALINE SULFATE [Concomitant]
     Dosage: 1 D/F, 3/D
     Dates: start: 20100101
  6. ATROVENT [Concomitant]
     Dosage: 1 D/F, 3/D
     Dates: start: 20100101
  7. PULMICORT [Concomitant]
     Dosage: UNK, 2/D
     Dates: start: 20100101
  8. SERETIDE [Concomitant]
     Dates: start: 20100101
  9. SPIRIVA [Concomitant]
     Route: 048
     Dates: start: 20100101
  10. PRAXILENE [Concomitant]
     Dosage: 200 MG, 3/D
     Route: 048
     Dates: start: 20100216
  11. PLAVIX [Concomitant]
     Dosage: 75 MG, DAILY (1/D)
     Route: 048
     Dates: start: 20100216
  12. PRAVASTATIN SODIUM [Concomitant]
     Dosage: 20 MG, DAILY (1/D)
     Route: 048
  13. NEXIUM [Concomitant]
     Dosage: 20 MG, EACH EVENING
     Route: 048
  14. ZOLPIDEM [Concomitant]
     Dosage: UNK, AS NEEDED
  15. CHAMPIX                            /05703001/ [Concomitant]
     Dosage: 0.5 MG, EACH EVENING
  16. CARBOPLATIN [Concomitant]
     Dosage: 413 MG, UNK
     Dates: start: 20100216
  17. ZOPHREN [Concomitant]
     Dosage: 8 MG, UNK
     Route: 042
     Dates: start: 20100216
  18. SOLUPRED [Concomitant]
     Dosage: 40 MG, UNK
     Dates: start: 20100216, end: 20100221
  19. PRIMPERAN /00041901/ [Concomitant]
     Dosage: 10 MG, 3/D
     Dates: start: 20100216, end: 20100227
  20. VITAMIN B-12 [Concomitant]
     Route: 030
     Dates: start: 20100209
  21. SPECIAFOLDINE [Concomitant]
     Dosage: 0.4 MG, DAILY (1/D)
     Dates: start: 20100211, end: 20100227

REACTIONS (11)
  - ASPERGILLOSIS [None]
  - ATRIAL FIBRILLATION [None]
  - BACTERIAL SEPSIS [None]
  - BICYTOPENIA [None]
  - ENTERITIS [None]
  - GENERAL PHYSICAL HEALTH DETERIORATION [None]
  - LEFT VENTRICULAR DYSFUNCTION [None]
  - LUNG DISORDER [None]
  - RENAL FAILURE ACUTE [None]
  - SHOCK [None]
  - TOXIC SKIN ERUPTION [None]
